FAERS Safety Report 5846256-X (Version None)
Quarter: 2008Q3

REPORT INFORMATION
  Report Type: 
  Country: None (occurrence: None)
  Receive Date: 20080813
  Receipt Date: 20080805
  Transmission Date: 20090109
  Serious: Yes (Other)
  Sender: FDA-Public Use
  Company Number: 2008SP015511

PATIENT
  Sex: Male
  Weight: 85 kg

DRUGS (6)
  1. PEG-INTRON [Suspect]
     Indication: HEPATITIS C
     Dosage: 120 MCG; QW;
     Dates: start: 20080211, end: 20080428
  2. REBETOL [Suspect]
     Indication: HEPATITIS C
     Dosage: 1000 MG; QD, 400 MG; ONCE
     Dates: start: 20080211, end: 20080501
  3. REBETOL [Suspect]
     Indication: HEPATITIS C
     Dosage: 1000 MG; QD, 400 MG; ONCE
     Dates: start: 20080502, end: 20080502
  4. TELAPREVIR (INVESTIGATIONAL DRUG) [Suspect]
     Indication: HEPATITIS C
     Dosage: 1125 MG; Q12H; 1125 MG; Q12H; 1225 MG; ONCE
     Dates: start: 20080211, end: 20080425
  5. TELAPREVIR (INVESTIGATIONAL DRUG) [Suspect]
     Indication: HEPATITIS C
     Dosage: 1125 MG; Q12H; 1125 MG; Q12H; 1225 MG; ONCE
     Dates: start: 20080427, end: 20080501
  6. TELAPREVIR (INVESTIGATIONAL DRUG) [Suspect]
     Indication: HEPATITIS C
     Dosage: 1125 MG; Q12H; 1125 MG; Q12H; 1225 MG; ONCE
     Dates: start: 20080502, end: 20080502

REACTIONS (3)
  - BONE FISSURE [None]
  - DRUG DOSE OMISSION [None]
  - TREATMENT NONCOMPLIANCE [None]
